FAERS Safety Report 6535155-6 (Version None)
Quarter: 2010Q1

REPORT INFORMATION
  Report Type: 
  Country: None (occurrence: None)
  Receive Date: 20100113
  Receipt Date: 20100104
  Transmission Date: 20100710
  Serious: Yes (Other)
  Sender: FDA-Public Use
  Company Number: US-CELGENEUS-163-50794-09111583

PATIENT
  Age: 59 Year
  Sex: Female

DRUGS (3)
  1. VIDAZA [Suspect]
     Route: 051
     Dates: start: 20090901
  2. VIDAZA [Suspect]
     Route: 041
     Dates: start: 20091026, end: 20091030
  3. VIDAZA [Suspect]
     Route: 065

REACTIONS (1)
  - PYODERMA GANGRENOSUM [None]
